FAERS Safety Report 25903113 (Version 1)
Quarter: 2025Q4

REPORT INFORMATION
  Report Type: Spontaneous
  Country: US (occurrence: US)
  Receive Date: 20251009
  Receipt Date: 20251009
  Transmission Date: 20260118
  Serious: No
  Sender: PFIZER
  Company Number: US-PFIZER INC-202500199292

PATIENT
  Age: 25 Year
  Sex: Female

DRUGS (1)
  1. LITFULO [Suspect]
     Active Substance: RITLECITINIB TOSYLATE
     Indication: Alopecia areata
     Dosage: 50 MG, 1X/DAY
     Route: 048
     Dates: start: 20250917

REACTIONS (4)
  - Pruritus [Unknown]
  - Eczema [Unknown]
  - Skin burning sensation [Unknown]
  - Contusion [Unknown]

NARRATIVE: CASE EVENT DATE: 20250901
